FAERS Safety Report 6711162-5 (Version None)
Quarter: 2010Q2

REPORT INFORMATION
  Report Type: 
  Country: None (occurrence: None)
  Receive Date: 20100504
  Receipt Date: 20100504
  Transmission Date: 20101027
  Serious: Yes (Other)
  Sender: FDA-Public Use
  Company Number: None

PATIENT
  Age: 30 Month
  Sex: Female
  Weight: 13.6079 kg

DRUGS (1)
  1. TYLENOL INFANT DROPS - DYE FREE 0.8 ML TYLENOL [Suspect]
     Indication: PYREXIA
     Dosage: 1.6 ML 4 HRS PO
     Route: 048
     Dates: start: 20100430, end: 20100501

REACTIONS (5)
  - ABDOMINAL PAIN UPPER [None]
  - COMMUNICATION DISORDER [None]
  - CRYING [None]
  - ERYTHEMA [None]
  - LETHARGY [None]
